FAERS Safety Report 24194226 (Version 1)
Quarter: 2024Q3

REPORT INFORMATION
  Report Type: Spontaneous
  Country: ES (occurrence: ES)
  Receive Date: 20240809
  Receipt Date: 20240809
  Transmission Date: 20241017
  Serious: Yes (Death)
  Sender: MYLAN
  Company Number: ES-MYLANLABS-2024M1073055

PATIENT
  Age: 41 Year
  Sex: Male

DRUGS (3)
  1. SORAFENIB [Suspect]
     Active Substance: SORAFENIB
     Indication: Thyroid cancer metastatic
     Dosage: UNK
     Route: 065
  2. LENVATINIB [Suspect]
     Active Substance: LENVATINIB
     Indication: Thyroid cancer metastatic
     Dosage: UNK
     Route: 065
  3. LUTETIUM OXODOTREOTIDE LU-177 [Suspect]
     Active Substance: LUTETIUM OXODOTREOTIDE LU-177
     Indication: Thyroid cancer metastatic
     Dosage: UNK
     Route: 065

REACTIONS (3)
  - Drug ineffective [Fatal]
  - Disease progression [Fatal]
  - Drug intolerance [Unknown]
